FAERS Safety Report 6786069-8 (Version None)
Quarter: 2010Q2

REPORT INFORMATION
  Report Type: 
  Country: None (occurrence: None)
  Receive Date: 20100623
  Receipt Date: 20100610
  Transmission Date: 20101027
  Serious: Yes (Hospitalization)
  Sender: FDA-Public Use
  Company Number: PHHY2010US35864

PATIENT
  Sex: Female

DRUGS (5)
  1. RECLAST [Suspect]
     Dosage: 5 MG/100ML
     Dates: start: 20100222
  2. SINGULAIR [Concomitant]
  3. LEVOTHYROXINE SODIUM [Concomitant]
     Dosage: 112 UG, UNK
  4. FLUTICASONE [Concomitant]
     Dosage: 50 UG, UNK
  5. KLOR-CON [Concomitant]
     Dosage: 20 MEQ, UNK

REACTIONS (10)
  - ARTHRALGIA [None]
  - BLOOD ELECTROLYTES DECREASED [None]
  - DELIRIUM [None]
  - EMOTIONAL DISORDER [None]
  - MALAISE [None]
  - MYALGIA [None]
  - NAUSEA [None]
  - PAIN [None]
  - PYREXIA [None]
  - VOMITING [None]
